FAERS Safety Report 4612787-3 (Version None)
Quarter: 2005Q1

REPORT INFORMATION
  Report Type: 
  Country: None (occurrence: None)
  Receive Date: 20050317
  Receipt Date: 20050317
  Transmission Date: 20050727
  Serious: Yes (Hospitalization, Other)
  Sender: FDA-Public Use
  Company Number: None

PATIENT
  Sex: Female
  Weight: 59.5 kg

DRUGS (2)
  1. DEXAMETHASONE [Suspect]
     Dosage: 8 MG PO BID DAYS 0-2 Q 21 DAYS X 3
     Route: 048
     Dates: start: 20041115
  2. DOCETAXEL [Suspect]
     Dosage: 75 MG/M2 IV OVER 60 MIN DAY 1 Q 21 DAYS X 3
     Route: 042
     Dates: start: 20041115, end: 20050214

REACTIONS (2)
  - DRUG TOXICITY [None]
  - DYSPNOEA [None]
